FAERS Safety Report 17925176 (Version 4)
Quarter: 2020Q3

REPORT INFORMATION
  Report Type: Spontaneous
  Country: US (occurrence: US)
  Receive Date: 20200622
  Receipt Date: 20200903
  Transmission Date: 20201103
  Serious: Yes (Hospitalization, Other)
  Sender: FDA-Public Use
  Company Number: US-VERTEX PHARMACEUTICALS-2020-013089

PATIENT
  Age: 55 Year
  Sex: Female

DRUGS (4)
  1. TRIKAFTA [Suspect]
     Active Substance: ELEXACAFTOR\IVACAFTOR\TEZACAFTOR
     Indication: CYSTIC FIBROSIS
     Dosage: (100MG ELEXACAFTOR/ 50MG TEZACAFTOR/ 75MG IVACAFTOR AND 150MG IVACAFTOR), TRADITIONAL DOSING
     Route: 048
     Dates: start: 20200514, end: 2020
  2. TACROLIMUS. [Concomitant]
     Active Substance: TACROLIMUS
  3. TRIKAFTA [Suspect]
     Active Substance: ELEXACAFTOR\IVACAFTOR\TEZACAFTOR
     Dosage: FULLY ON MEDICATION
     Route: 048
     Dates: start: 2020
  4. TRIKAFTA [Suspect]
     Active Substance: ELEXACAFTOR\IVACAFTOR\TEZACAFTOR
     Dosage: EVERY OTHER DAY
     Route: 048
     Dates: start: 2020, end: 2020

REACTIONS (11)
  - Erythema [Unknown]
  - Squamous cell carcinoma of skin [Unknown]
  - Weight increased [Not Recovered/Not Resolved]
  - Pruritus [Unknown]
  - Pain in extremity [Unknown]
  - Abdominal pain upper [Recovered/Resolved]
  - Abnormal sensation in eye [Unknown]
  - Supraventricular tachycardia [Not Recovered/Not Resolved]
  - Fluid retention [Not Recovered/Not Resolved]
  - Urticaria [Unknown]
  - Joint swelling [Not Recovered/Not Resolved]

NARRATIVE: CASE EVENT DATE: 2020
